FAERS Safety Report 6657247-3 (Version None)
Quarter: 2010Q1

REPORT INFORMATION
  Report Type: 
  Country: None (occurrence: None)
  Receive Date: 20100330
  Receipt Date: 20100317
  Transmission Date: 20100710
  Serious: Yes (Other)
  Sender: FDA-Public Use
  Company Number: CA-ASTRAZENECA-2010SE12464

PATIENT
  Age: 15 Year
  Sex: Male

DRUGS (2)
  1. RATIO-QUETIAPINE [Suspect]
     Indication: PSYCHOTIC DISORDER
     Dosage: HALF TABLET PER DAY
     Route: 048
  2. RATIO-QUETIAPINE [Suspect]
     Dosage: SNORT POWDER AFTER CRUSHING
     Route: 048

REACTIONS (1)
  - DRUG ABUSE [None]
